FAERS Safety Report 7825741-5 (Version None)
Quarter: 2011Q4

REPORT INFORMATION
  Report Type: 
  Country: None (occurrence: None)
  Receive Date: 20111019
  Receipt Date: 20111006
  Transmission Date: 20120403
  Serious: Yes (Other)
  Sender: FDA-Public Use
  Company Number: PHFR2011GB03904

PATIENT
  Sex: Male
  Weight: 79 kg

DRUGS (4)
  1. CITALOPRAM HYDROBROMIDE [Concomitant]
     Indication: DEPRESSION
     Dosage: 10 MG, UNK
     Route: 048
     Dates: start: 20110101
  2. CLOBETASOL PROPIONATE [Concomitant]
     Indication: ECZEMA
     Dosage: UNK
     Route: 061
     Dates: start: 20110101
  3. ACETAMINOPHEN [Concomitant]
     Indication: ANALGESIC THERAPY
     Dosage: 1-4G
     Route: 048
     Dates: start: 19740101
  4. ILARIS [Suspect]
     Indication: CRYOPYRIN ASSOCIATED PERIODIC SYNDROME
     Dosage: 150 MG / 8 WEEKLY
     Route: 058
     Dates: start: 20060101

REACTIONS (6)
  - VENOUS INSUFFICIENCY [None]
  - RASH [None]
  - SKIN PLAQUE [None]
  - SKIN OEDEMA [None]
  - CELLULITIS [None]
  - ECZEMA [None]
